FAERS Safety Report 20228126 (Version 1)
Quarter: 2021Q4

REPORT INFORMATION
  Report Type: Spontaneous
  Country: GB (occurrence: GB)
  Receive Date: 20211224
  Receipt Date: 20211224
  Transmission Date: 20220303
  Serious: Yes (Death, Hospitalization, Other)
  Sender: FDA-Public Use
  Company Number: None

PATIENT
  Age: 15 Year
  Sex: Male

DRUGS (11)
  1. BRIVIACT [Suspect]
     Active Substance: BRIVARACETAM
     Indication: Epilepsy
     Dosage: 15MG
     Route: 048
     Dates: start: 201803, end: 2018
  2. BRIVIACT [Suspect]
     Active Substance: BRIVARACETAM
     Dosage: 10MG
     Route: 048
     Dates: start: 2018, end: 2018
  3. KEPPRA [Suspect]
     Active Substance: LEVETIRACETAM
     Indication: Epilepsy
     Dosage: 250 MILLIGRAM, 2X/DAY (BID)
     Route: 048
     Dates: end: 20200410
  4. LACOSAMIDE [Suspect]
     Active Substance: LACOSAMIDE
     Indication: Epilepsy
     Dosage: 1 DOSAGE FORM, TOTAL, 10MG OR 30MG NOT SURE LOW ONLY ONE TAKEN
     Route: 048
  5. PERAMPANEL [Suspect]
     Active Substance: PERAMPANEL
     Indication: Epilepsy
     Dosage: UNK
     Route: 048
     Dates: start: 202002, end: 20200409
  6. PHENYTOIN [Suspect]
     Active Substance: PHENYTOIN
     Indication: Product used for unknown indication
     Dosage: 100MG AM AND 200MG PM 2X/DAY (BID)
     Route: 048
     Dates: end: 2017
  7. RUFINAMIDE [Suspect]
     Active Substance: RUFINAMIDE
     Indication: Epilepsy
     Dosage: 500 MILLIGRAM, 2X/DAY (BID)
     Route: 048
     Dates: end: 20200410
  8. SULTHIAME [Suspect]
     Active Substance: SULTHIAME
     Indication: Epilepsy
     Dosage: 500 MILLIGRAM, 2X/DAY (BID)
     Route: 048
  9. ZONISAMIDE [Suspect]
     Active Substance: ZONISAMIDE
     Indication: Epilepsy
     Dosage: 50MG AM AND 100MG PM
     Route: 048
     Dates: start: 2017, end: 20200410
  10. PREDNISOLONE [Suspect]
     Active Substance: PREDNISOLONE
     Indication: Epilepsy
     Dosage: EVERY HIGH DOSE FOR 28 DAYS
     Route: 048
     Dates: start: 201803, end: 201803
  11. CARBAMAZEPINE [Suspect]
     Active Substance: CARBAMAZEPINE
     Indication: Product used for unknown indication
     Dosage: UNK

REACTIONS (17)
  - Sudden unexplained death in epilepsy [Fatal]
  - Postictal paralysis [Unknown]
  - Psychotic disorder [Recovered/Resolved with Sequelae]
  - Hallucination, auditory [Not Recovered/Not Resolved]
  - Aggression [Not Recovered/Not Resolved]
  - Generalised onset non-motor seizure [Unknown]
  - Asthenia [Unknown]
  - Depressed mood [Unknown]
  - Fatigue [Unknown]
  - Seizure cluster [Unknown]
  - Anxiety [Unknown]
  - Emotional disorder [Unknown]
  - Crying [Unknown]
  - Fear [Unknown]
  - Body temperature fluctuation [Unknown]
  - Atonic seizures [Unknown]
  - Underdose [Unknown]

NARRATIVE: CASE EVENT DATE: 20180301
